FAERS Safety Report 9779480 (Version 1)
Quarter: 2013Q4

REPORT INFORMATION
  Report Type: Report from Study
  Country: DE (occurrence: DE)
  Receive Date: 20131223
  Receipt Date: 20131223
  Transmission Date: 20140711
  Serious: Yes (Hospitalization)
  Sender: FDA-Public Use
  Company Number: DE-ABBVIE-13P-062-1180052-00

PATIENT
  Age: 18 Year
  Sex: Female

DRUGS (3)
  1. HUMIRA [Suspect]
     Indication: JUVENILE IDIOPATHIC ARTHRITIS
     Route: 058
     Dates: start: 20120415
  2. METHOTREXAAT [Suspect]
     Indication: JUVENILE IDIOPATHIC ARTHRITIS
     Dates: end: 2013
  3. METHOTREXAAT [Suspect]
     Dates: start: 2013

REACTIONS (1)
  - Intercostal neuralgia [Recovered/Resolved]
